FAERS Safety Report 7972084-5 (Version None)
Quarter: 2011Q4

REPORT INFORMATION
  Report Type: 
  Country: None (occurrence: None)
  Receive Date: 20111212
  Receipt Date: 20111206
  Transmission Date: 20120403
  Serious: No
  Sender: FDA-Public Use
  Company Number: US-PFIZER INC-2011298731

PATIENT
  Age: 80 Year
  Sex: Female

DRUGS (2)
  1. TOVIAZ [Suspect]
     Indication: POLLAKIURIA
     Dosage: UNK
  2. GELNIQUE [Suspect]
     Indication: POLLAKIURIA
     Dosage: UNK

REACTIONS (1)
  - DRY MOUTH [None]
